FAERS Safety Report 8032014-7 (Version None)
Quarter: 2012Q1

REPORT INFORMATION
  Report Type: 
  Country: None (occurrence: None)
  Receive Date: 20120109
  Receipt Date: 20110630
  Transmission Date: 20120608
  Serious: No
  Sender: FDA-Public Use
  Company Number: US-ABBOTT-11P-163-0836218-00

PATIENT
  Sex: Female
  Weight: 72.64 kg

DRUGS (4)
  1. EXJADE [Concomitant]
     Indication: BLOOD IRON
  2. VICODIN [Suspect]
     Indication: INTERVERTEBRAL DISC PROTRUSION
  3. VICODIN [Suspect]
     Indication: BACK DISORDER
     Dosage: 5MG/500MG
     Dates: start: 20110501
  4. VICODIN [Suspect]
     Indication: BACK PAIN

REACTIONS (3)
  - NAUSEA [None]
  - VOMITING [None]
  - DIZZINESS [None]
